FAERS Safety Report 11305794 (Version 1)
Quarter: 2015Q3

REPORT INFORMATION
  Report Type: Spontaneous
  Country: US (occurrence: US)
  Receive Date: 20150723
  Receipt Date: 20150723
  Transmission Date: 20151125
  Serious: Yes (Other)
  Sender: FDA-Public Use
  Company Number: US-AUROBINDO-AUR-APL-2015-06288

PATIENT
  Age: 71 Year
  Sex: Female

DRUGS (1)
  1. VALSARTAN TABLETS [Suspect]
     Active Substance: VALSARTAN
     Indication: PRODUCT USED FOR UNKNOWN INDICATION
     Route: 065

REACTIONS (19)
  - Muscle atrophy [Recovered/Resolved]
  - Gastrointestinal sounds abnormal [Recovered/Resolved]
  - Abdominal pain [Recovered/Resolved]
  - Vomiting [Recovered/Resolved]
  - Weight decreased [Recovered/Resolved]
  - Oedema [Recovered/Resolved]
  - Carotene abnormal [Unknown]
  - Zinc deficiency [Unknown]
  - Carotene decreased [Unknown]
  - Atrophy [Recovered/Resolved]
  - Pleural effusion [Unknown]
  - Malabsorption [Recovered/Resolved]
  - Diarrhoea [Recovered/Resolved]
  - Nausea [Recovered/Resolved]
  - Lymphocytosis [Recovered/Resolved]
  - Faecal incontinence [Recovered/Resolved]
  - Small intestinal bacterial overgrowth [Recovered/Resolved]
  - Blood folate increased [Unknown]
  - Coeliac disease [Recovered/Resolved]
